FAERS Safety Report 9885821 (Version 3)
Quarter: 2015Q4

REPORT INFORMATION
  Report Type: Report from Study
  Country: US (occurrence: US)
  Receive Date: 20140210
  Receipt Date: 20151109
  Transmission Date: 20160305
  Serious: Yes (Hospitalization)
  Sender: FDA-Public Use
  Company Number: US-ASTRAZENECA-2014SE09365

PATIENT
  Age: 58 Year
  Sex: Male
  Weight: 102 kg

DRUGS (6)
  1. CELECOXIB;IBUPROFEN/NAPROXEN CODE NOT BROKEN [Suspect]
     Active Substance: CELECOXIB\IBUPROFEN\NAPROXEN
     Indication: RHEUMATOID ARTHRITIS
     Dosage: THREE TIMES A DAY, HIGH DOSE
     Route: 048
     Dates: start: 20121120, end: 20140108
  2. ASPIRIN. [Concomitant]
     Active Substance: ASPIRIN
     Indication: CARDIOVASCULAR EVENT PROPHYLAXIS
     Route: 048
     Dates: start: 2008
  3. MULTIVITAMINS [Concomitant]
     Active Substance: VITAMINS
     Indication: VITAMIN SUPPLEMENTATION
     Route: 048
     Dates: start: 2006
  4. ALLOPURINOL. [Concomitant]
     Active Substance: ALLOPURINOL
     Indication: GOUT
     Dates: start: 2012
  5. NEXIUM [Suspect]
     Active Substance: ESOMEPRAZOLE MAGNESIUM
     Indication: GASTRITIS PROPHYLAXIS
     Route: 048
     Dates: start: 20121120, end: 20140108
  6. CELECOXIB;IBUPROFEN/NAPROXEN CODE NOT BROKEN [Suspect]
     Active Substance: CELECOXIB\IBUPROFEN\NAPROXEN
     Indication: OSTEOARTHRITIS
     Dosage: THREE TIMES A DAY, HIGH DOSE
     Route: 048
     Dates: start: 20121120, end: 20140108

REACTIONS (1)
  - Deep vein thrombosis [Recovered/Resolved]

NARRATIVE: CASE EVENT DATE: 20140108
